FAERS Safety Report 6120912-0 (Version None)
Quarter: 2009Q1

REPORT INFORMATION
  Report Type: 
  Country: None (occurrence: None)
  Receive Date: 20090317
  Receipt Date: 20090316
  Transmission Date: 20090719
  Serious: Yes (Other)
  Sender: FDA-Public Use
  Company Number: US-BAYER-200813578BCC

PATIENT
  Age: 59 Year
  Sex: Female
  Weight: 54 kg

DRUGS (17)
  1. ALEVE (CAPLET) [Suspect]
     Indication: BACK PAIN
     Dosage: AS USED: 220 MG  UNIT DOSE: 220 MG
     Route: 048
     Dates: start: 20080902, end: 20080902
  2. TRAMADOL HCL [Concomitant]
     Dosage: TOTAL DAILY DOSE: 300 MG  UNIT DOSE: 50 MG
  3. NEURONTIN [Concomitant]
     Dosage: TOTAL DAILY DOSE: 2700 MG  UNIT DOSE: 300 MG
  4. TRANXENE [Concomitant]
  5. SUDAFED 12 HOUR [Concomitant]
  6. MUCINEX [Concomitant]
  7. FOSAMAX [Concomitant]
  8. WELLBUTRIN [Concomitant]
  9. FLONASE [Concomitant]
  10. PHENYLEPHRINE [Concomitant]
  11. OXYMETAZOLINE HYDROCHLORIDE [Concomitant]
  12. ACIDOPHILUS [Concomitant]
  13. VALERIAN [Concomitant]
  14. VITAMIN E [Concomitant]
  15. CALCIUM D [Concomitant]
  16. MULTI-VITAMIN [Concomitant]
  17. RESTASIS [Concomitant]

REACTIONS (4)
  - DIZZINESS [None]
  - FEELING ABNORMAL [None]
  - LOSS OF CONSCIOUSNESS [None]
  - SYNCOPE [None]
